FAERS Safety Report 9837423 (Version 3)
Quarter: 2014Q3

REPORT INFORMATION
  Report Type: Spontaneous
  Country: US (occurrence: US)
  Receive Date: 20140123
  Receipt Date: 20140721
  Transmission Date: 20150326
  Serious: Yes (Hospitalization, Other)
  Sender: FDA-Public Use
  Company Number: US-009507513-2009-189961-NL

PATIENT
  Sex: Female
  Weight: 108.6 kg

DRUGS (7)
  1. MOTRIN [Concomitant]
     Active Substance: IBUPROFEN
     Indication: CHEST PAIN
     Dosage: UNK UNK, PRN
     Route: 048
     Dates: start: 20070118
  2. ACETAMINOPHEN (+) HYDROCODONE BITARTRATE [Concomitant]
     Active Substance: ACETAMINOPHEN\HYDROCODONE
     Indication: CHEST PAIN
     Dosage: UNK UNK, PRN
     Route: 048
     Dates: start: 20070118
  3. FLUCONAZOLE. [Concomitant]
     Active Substance: FLUCONAZOLE
     Indication: PRODUCT USED FOR UNKNOWN INDICATION
     Dosage: 150 MG, UNK
     Dates: start: 20051017
  4. NUVARING [Suspect]
     Active Substance: ETHINYL ESTRADIOL\ETONOGESTREL
     Indication: CONTRACEPTION
     Dosage: CONTINUING: NO
     Route: 067
     Dates: start: 20051014, end: 200612
  5. ASPIRIN. [Concomitant]
     Active Substance: ASPIRIN
     Indication: CHEST PAIN
     Dosage: UNK UNK, PRN
     Route: 048
     Dates: start: 20070118
  6. CAFFEINE. [Concomitant]
     Active Substance: CAFFEINE
     Dosage: 200 MG, PRN
     Route: 048
  7. AMOXICILLIN. [Concomitant]
     Active Substance: AMOXICILLIN
     Indication: PRODUCT USED FOR UNKNOWN INDICATION
     Dosage: 500 MG, UNK
     Dates: start: 20060914

REACTIONS (9)
  - Abortion spontaneous [Unknown]
  - Unintended pregnancy [Unknown]
  - Tooth extraction [Unknown]
  - Menorrhagia [Unknown]
  - Musculoskeletal chest pain [Unknown]
  - Iron deficiency anaemia [Unknown]
  - Pulmonary embolism [Unknown]
  - Deep vein thrombosis [Recovered/Resolved]
  - Tendonitis [Unknown]

NARRATIVE: CASE EVENT DATE: 2006
